APPROVED DRUG PRODUCT: CALCITONIN-SALMON
Active Ingredient: CALCITONIN SALMON
Strength: 200 IU/SPRAY
Dosage Form/Route: SPRAY, METERED;NASAL
Application: A076396 | Product #001 | TE Code: AB
Applicant: APOTEX INC
Approved: Nov 17, 2008 | RLD: No | RS: Yes | Type: RX